FAERS Safety Report 9233523 (Version 2)
Quarter: 2013Q2

REPORT INFORMATION
  Report Type: Spontaneous
  Country: US (occurrence: None)
  Receive Date: 20121031
  Receipt Date: 20130107
  Transmission Date: 20140414
  Serious: Yes (Other)
  Sender: FDA-Public Use
  Company Number: PHEH2012US014503

PATIENT
  Age: 50 Year
  Sex: Female

DRUGS (5)
  1. GILENYA [Suspect]
     Indication: MULTIPLE SCLEROSIS
     Route: 048
     Dates: start: 20120427
  2. SOLU-MEDROL (METHYLPREDNISOLONE SODIUM SUCCINATE) [Suspect]
  3. PREDNISONE (PREDNISONE) [Concomitant]
  4. CITALOPRAM (CITALOPRAM) [Concomitant]
  5. XALATAN (LANTOPROST) [Concomitant]

REACTIONS (1)
  - Palpitations [None]
